FAERS Safety Report 23074054 (Version 3)
Quarter: 2023Q4

REPORT INFORMATION
  Report Type: Spontaneous
  Country: US (occurrence: US)
  Receive Date: 20231017
  Receipt Date: 20231205
  Transmission Date: 20240110
  Serious: No
  Sender: FDA-Public Use
  Company Number: US-002147023-NVSC2023US222686

PATIENT
  Age: 33 Year
  Sex: Male
  Weight: 161.03 kg

DRUGS (2)
  1. COSENTYX [Suspect]
     Active Substance: SECUKINUMAB
     Indication: Psoriatic arthropathy
     Dosage: 300 MG, Q2W
     Route: 058
     Dates: start: 202212
  2. COSENTYX [Suspect]
     Active Substance: SECUKINUMAB
     Indication: Arthropathy
     Dosage: 300 MG, QMO
     Route: 058
     Dates: start: 202212

REACTIONS (2)
  - Skin lesion [Not Recovered/Not Resolved]
  - Product use in unapproved indication [Unknown]
